FAERS Safety Report 5910269-X (Version None)
Quarter: 2008Q4

REPORT INFORMATION
  Report Type: 
  Country: None (occurrence: None)
  Receive Date: 20081007
  Receipt Date: 20080721
  Transmission Date: 20090506
  Serious: No
  Sender: FDA-Public Use
  Company Number: A0736944A

PATIENT
  Age: 55 Year
  Sex: Female
  Weight: 125.9 kg

DRUGS (10)
  1. ADVAIR DISKUS 100/50 [Suspect]
     Indication: ASTHMA
     Dosage: 1PUFF TWICE PER DAY
     Route: 055
     Dates: start: 20080117, end: 20080401
  2. FLOVENT [Suspect]
     Indication: ASTHMA
     Route: 055
  3. AVAPRO [Concomitant]
  4. CARVEDILOL [Concomitant]
  5. EFFEXOR [Concomitant]
  6. FOLIC ACID [Concomitant]
  7. LASIX [Concomitant]
  8. LEVOXYL [Concomitant]
  9. ZOCOR [Concomitant]
  10. VENTOLIN HFA [Concomitant]

REACTIONS (3)
  - BACK PAIN [None]
  - DRUG INEFFECTIVE [None]
  - MUSCLE SPASMS [None]
